FAERS Safety Report 10092288 (Version 1)
Quarter: 2014Q2

REPORT INFORMATION
  Report Type: Spontaneous
  Country: GB (occurrence: GB)
  Receive Date: 20140421
  Receipt Date: 20140421
  Transmission Date: 20141212
  Serious: Yes (Congenital Anomaly)
  Sender: FDA-Public Use
  Company Number: GB-MYLANLABS-2014S1008270

PATIENT
  Sex: 0

DRUGS (5)
  1. ALENDRONIC ACID [Suspect]
     Indication: STEROID THERAPY
     Dosage: HAD BEEN TAKING IT VERY INTERMITTENTLY
     Route: 064
  2. CALCICHEW [Concomitant]
     Indication: COLITIS ULCERATIVE
     Dosage: CONTINUOUS
  3. MEZAVANT [Concomitant]
     Indication: COLITIS ULCERATIVE
     Dosage: CONTINUOUS
  4. OMEPRAZOLE [Concomitant]
     Indication: COLITIS ULCERATIVE
     Dosage: CONTINUOUS
  5. AZATHIOPRINE [Concomitant]
     Indication: COLITIS ULCERATIVE
     Dosage: CONTINUOUS

REACTIONS (2)
  - Hypoplastic left heart syndrome [Not Recovered/Not Resolved]
  - Exposure during pregnancy [Not Recovered/Not Resolved]
